FAERS Safety Report 9928181 (Version 1)
Quarter: 2014Q1

REPORT INFORMATION
  Report Type: Spontaneous
  Country: US (occurrence: None)
  Receive Date: 20140226
  Receipt Date: 20140226
  Transmission Date: 20141002
  Serious: Yes (Disabling)
  Sender: FDA-Public Use
  Company Number: None

PATIENT
  Age: 52 Year
  Sex: Female
  Weight: 74.84 kg

DRUGS (1)
  1. LEVAQUIN [Suspect]
     Indication: SINUSITIS
     Dosage: 1 PILL DAILY ?ONCE DAILY?TAKEN BY MOUTH
     Route: 048
     Dates: start: 20100531, end: 20100606

REACTIONS (6)
  - Tenosynovitis [None]
  - Tendon rupture [None]
  - Rotator cuff syndrome [None]
  - Meniscus injury [None]
  - Tendon rupture [None]
  - Tendon injury [None]
